FAERS Safety Report 4988503-2 (Version None)
Quarter: 2006Q2

REPORT INFORMATION
  Report Type: 
  Country: None (occurrence: None)
  Receive Date: 20060502
  Receipt Date: 20050913
  Transmission Date: 20061013
  Serious: No
  Sender: FDA-Public Use
  Company Number: US-GLAXOSMITHKLINE-A0574085A

PATIENT
  Age: 2 Year
  Sex: Male

DRUGS (1)
  1. AMOXIL [Suspect]
     Indication: LYME DISEASE
     Route: 048
     Dates: start: 20050910

REACTIONS (1)
  - MOUTH ULCERATION [None]
